FAERS Safety Report 8407609-9 (Version None)
Quarter: 2012Q2

REPORT INFORMATION
  Report Type: 
  Country: None (occurrence: None)
  Receive Date: 20120604
  Receipt Date: 20120523
  Transmission Date: 20120825
  Serious: Yes (Hospitalization)
  Sender: FDA-Public Use
  Company Number: US-ACTELION-A-US2012-66310

PATIENT

DRUGS (5)
  1. COUMADIN [Concomitant]
  2. EPOPROSTENOL SODIUM [Suspect]
     Indication: PULMONARY ARTERIAL HYPERTENSION
     Dosage: 24 NG/KG, PER MIN
     Route: 042
     Dates: start: 20110815
  3. TRACLEER [Suspect]
     Indication: PULMONARY ARTERIAL HYPERTENSION
     Dosage: UNK
     Route: 048
     Dates: start: 20040927
  4. VANCOMYCIN [Concomitant]
  5. SILDENAFIL [Concomitant]

REACTIONS (4)
  - SKIN ULCER [None]
  - CLOSTRIDIUM DIFFICILE COLITIS [None]
  - LOSS OF CONSCIOUSNESS [None]
  - PNEUMONIA [None]
